FAERS Safety Report 9691989 (Version 4)
Quarter: 2014Q2

REPORT INFORMATION
  Report Type: Report from Study
  Country: CA (occurrence: CA)
  Receive Date: 20131118
  Receipt Date: 20140529
  Transmission Date: 20141212
  Serious: Yes (Hospitalization)
  Sender: FDA-Public Use
  Company Number: CA-BIOGENIDEC-2013BI099301

PATIENT
  Age: 47 Year
  Sex: Male
  Weight: 99 kg

DRUGS (6)
  1. PLACEBO [Suspect]
     Indication: SECONDARY PROGRESSIVE MULTIPLE SCLEROSIS
     Route: 042
     Dates: start: 20120611
  2. BACLOFEN [Concomitant]
     Indication: MUSCLE SPASTICITY
     Route: 048
     Dates: start: 2007
  3. ZANAFLEX [Concomitant]
     Indication: MUSCLE SPASTICITY
     Route: 048
     Dates: start: 2008
  4. CIPRALEX [Concomitant]
     Indication: DEPRESSION
     Route: 048
     Dates: start: 2008
  5. DETROL [Concomitant]
     Indication: MICTURITION URGENCY
     Route: 048
     Dates: start: 2010
  6. 4-AMINOPYRIDINE [Concomitant]
     Indication: GAIT DISTURBANCE
     Route: 048
     Dates: start: 2009

REACTIONS (2)
  - Cellulitis [Recovered/Resolved]
  - Uhthoff^s phenomenon [Recovered/Resolved]
